FAERS Safety Report 6916536-5 (Version None)
Quarter: 2010Q3

REPORT INFORMATION
  Report Type: 
  Country: None (occurrence: None)
  Receive Date: 20100805
  Receipt Date: 20100712
  Transmission Date: 20110219
  Serious: Yes (Other)
  Sender: FDA-Public Use
  Company Number: 2010SP038593

PATIENT
  Sex: Female

DRUGS (1)
  1. MARVELON 21 (DESOGESTREL / ETHINYLESTRADIOL / 00570801 / ) [Suspect]
     Indication: OVARIAN CANCER
     Dosage: 1 DF;QD;PO
     Route: 048
     Dates: start: 20100629, end: 20100710

REACTIONS (6)
  - ANAEMIA [None]
  - BLOOD PRESSURE INCREASED [None]
  - COLITIS ISCHAEMIC [None]
  - METRORRHAGIA [None]
  - MUSCLE SPASMS [None]
  - PYREXIA [None]
